FAERS Safety Report 20895624 (Version 1)
Quarter: 2022Q2

REPORT INFORMATION
  Report Type: Spontaneous
  Country: US (occurrence: None)
  Receive Date: 20220531
  Receipt Date: 20220531
  Transmission Date: 20220721
  Serious: No
  Sender: FDA-Public Use
  Company Number: None

PATIENT
  Age: 49 Year
  Sex: Female

DRUGS (1)
  1. COSENTYX [Suspect]
     Active Substance: SECUKINUMAB
     Indication: Psoriasis
     Dosage: INJECT 300MG (2 PEN) SUBCUTANEOUSLY  ONCE A WEEK FOR  5 WEEKS  AS DIRECTED?
     Route: 058
     Dates: start: 202109

REACTIONS (4)
  - Anxiety [None]
  - Dizziness [None]
  - Abdominal pain upper [None]
  - Sinusitis [None]
